FAERS Safety Report 9507481 (Version 1)
Quarter: 2013Q3

REPORT INFORMATION
  Report Type: Spontaneous
  Country: US (occurrence: None)
  Receive Date: 20130904
  Receipt Date: 20130904
  Transmission Date: 20140515
  Serious: Yes (Death, Hospitalization)
  Sender: FDA-Public Use
  Company Number: UTC-037071

PATIENT
  Age: 40 Year
  Sex: Female
  Weight: 41.4 kg

DRUGS (1)
  1. REMODULIN [Suspect]
     Indication: PULMONARY ARTERIAL HYPERTENSION
     Dosage: 169.2 UG/KG (0.1175 UG/KG, 1 IN 1 MIN), INTRAVENOUS DRIP
     Route: 041
     Dates: start: 20070501

REACTIONS (4)
  - Haemoptysis [None]
  - Dyspnoea [None]
  - Sepsis [None]
  - Cardiogenic shock [None]
